FAERS Safety Report 11677016 (Version 6)
Quarter: 2015Q4

REPORT INFORMATION
  Report Type: Spontaneous
  Country: None (occurrence: US)
  Receive Date: 20151028
  Receipt Date: 20151125
  Transmission Date: 20160304
  Serious: No
  Sender: FDA-Public Use
  Company Number: US-RARE DISEASE THERAPEUTICS, INC.-1043506

PATIENT
  Age: 8 Year
  Sex: Female
  Weight: 30.2 kg

DRUGS (12)
  1. OXCARBAZEPINE. [Concomitant]
     Active Substance: OXCARBAZEPINE
     Dates: start: 201110
  2. CYSTADANE [Suspect]
     Active Substance: BETAINE
     Route: 048
     Dates: start: 200709, end: 200802
  3. CYSTADANE [Suspect]
     Active Substance: BETAINE
     Indication: METHYLENETETRAHYDROFOLATE REDUCTASE DEFICIENCY
     Route: 048
     Dates: start: 20061228, end: 200702
  4. ALLEGRA [Concomitant]
     Active Substance: FEXOFENADINE HYDROCHLORIDE
  5. CYSTADANE [Suspect]
     Active Substance: BETAINE
     Route: 048
     Dates: start: 200802
  6. CYSTADANE [Suspect]
     Active Substance: BETAINE
     Route: 048
     Dates: start: 200703, end: 200705
  7. CYSTADANE [Suspect]
     Active Substance: BETAINE
     Route: 048
     Dates: start: 200705, end: 200709
  8. LEUCOVORIN. [Concomitant]
     Active Substance: LEUCOVORIN
  9. LAMICTAL [Suspect]
     Active Substance: LAMOTRIGINE
     Route: 048
     Dates: start: 20140530
  10. LEVOCARNITINE. [Concomitant]
     Active Substance: LEVOCARNITINE
     Route: 048
     Dates: start: 20061228
  11. CYSTADANE [Suspect]
     Active Substance: BETAINE
     Route: 048
     Dates: start: 200702, end: 200703
  12. TRILEPTAL [Concomitant]
     Active Substance: OXCARBAZEPINE
     Route: 048
     Dates: start: 201110

REACTIONS (3)
  - Insomnia [Not Recovered/Not Resolved]
  - Energy increased [Not Recovered/Not Resolved]
  - Incontinence [Not Recovered/Not Resolved]

NARRATIVE: CASE EVENT DATE: 20130904
